FAERS Safety Report 6196382-3 (Version None)
Quarter: 2009Q2

REPORT INFORMATION
  Report Type: 
  Country: None (occurrence: None)
  Receive Date: 20090520
  Receipt Date: 20071009
  Transmission Date: 20091009
  Serious: Yes (Hospitalization, Other)
  Sender: FDA-Public Use
  Company Number: US-ASTRAZENECA-2006UW21028

PATIENT
  Age: 49 Year
  Sex: Female
  Weight: 102.5 kg

DRUGS (36)
  1. SEROQUEL [Suspect]
     Indication: SLEEP DISORDER
     Route: 048
     Dates: start: 20040426
  2. SEROQUEL [Suspect]
     Route: 048
  3. ABILIFY [Concomitant]
  4. RISPERDAL [Concomitant]
  5. WELLBUTRIN [Concomitant]
     Dosage: 150 - 300 MG
     Route: 048
  6. LEXAPRO [Concomitant]
     Dosage: 100 - 200 MG
     Route: 048
  7. DIOVAN HCT [Concomitant]
     Indication: HYPERTENSION
     Dosage: 160 MG / 12.5 MG
     Route: 048
  8. GLYBURIDE [Concomitant]
     Indication: TYPE 2 DIABETES MELLITUS
     Route: 048
  9. GABAPENTIN [Concomitant]
     Route: 048
  10. PROZAC [Concomitant]
     Dosage: 20 - 40 MG
     Route: 048
  11. LUNESTA [Concomitant]
     Route: 048
     Dates: start: 20060822
  12. NAPROXEN [Concomitant]
     Route: 048
  13. SANCTURA [Concomitant]
     Route: 048
  14. CLONIDINE [Concomitant]
  15. NARCAN [Concomitant]
     Indication: RESPIRATORY DEPRESSION
     Route: 042
  16. ALBUTEROL [Concomitant]
     Route: 055
  17. PREMARIN [Concomitant]
     Route: 048
  18. DILTIAZEM [Concomitant]
     Route: 048
  19. CELEBREX [Concomitant]
     Indication: ANTIINFLAMMATORY THERAPY
     Route: 048
  20. LASIX [Concomitant]
     Route: 048
  21. AMBIEN [Concomitant]
     Dosage: 5 - 10 MG
     Route: 048
  22. GLUCOPHAGE [Concomitant]
     Indication: TYPE 2 DIABETES MELLITUS
     Dosage: 500 - 1500 MG
     Route: 048
  23. DEPAKOTE [Concomitant]
     Dosage: 250 - 500 MG
     Route: 048
  24. MEPERIDINE HCL [Concomitant]
     Dosage: 10 - 40 MG
  25. AMITRIPTLINE HYDROCHLORIDE TAB [Concomitant]
     Route: 048
  26. PROMETHAZINE HCL [Concomitant]
     Route: 017
  27. DITROPAN XL [Concomitant]
     Route: 048
  28. IPRATROPIUM BROMIDE [Concomitant]
     Route: 055
  29. REGULAR INSULIN [Concomitant]
  30. DICYCLOMINE HYDROCHLORIDE [Concomitant]
     Route: 048
  31. MONOPRIL [Concomitant]
     Dosage: 5 - 10 MG
     Route: 048
  32. HYDROCHLOROTHIAZIDE [Concomitant]
     Route: 048
  33. TIZANIDINE HYDROCHLORIDE [Concomitant]
     Route: 048
  34. IMDUR [Concomitant]
     Route: 048
  35. CATAPRES [Concomitant]
     Indication: HYPERTENSION
     Dates: start: 20030315
  36. PHENERGAN [Concomitant]

REACTIONS (18)
  - ABDOMINAL PAIN [None]
  - BACTERIA SPUTUM IDENTIFIED [None]
  - CELLULITIS [None]
  - CHOLECYSTITIS [None]
  - CHOLELITHIASIS [None]
  - DIABETES MELLITUS [None]
  - HAEMATURIA [None]
  - HOT FLUSH [None]
  - HYPERHIDROSIS [None]
  - INSOMNIA [None]
  - LUPUS NEPHRITIS [None]
  - MYOFASCIAL SPASM [None]
  - PNEUMONIA [None]
  - PROTEINURIA [None]
  - PYREXIA [None]
  - RHEUMATOID ARTHRITIS [None]
  - SCIATICA [None]
  - TARDIVE DYSKINESIA [None]
